FAERS Safety Report 21202353 (Version 3)
Quarter: 2023Q2

REPORT INFORMATION
  Report Type: Spontaneous
  Country: US (occurrence: US)
  Receive Date: 20220811
  Receipt Date: 20230628
  Transmission Date: 20230722
  Serious: No
  Sender: FDA-Public Use
  Company Number: US-PFIZER INC-202201051304

PATIENT
  Age: 82 Year
  Sex: Female
  Weight: 49.887 kg

DRUGS (4)
  1. IBRANCE [Suspect]
     Active Substance: PALBOCICLIB
     Indication: Neoplasm malignant
     Dosage: 200 MG
     Dates: start: 2022
  2. IBRANCE [Suspect]
     Active Substance: PALBOCICLIB
     Dosage: 125 MG, CYCLIC (ON DAYS 1-21 OF EACH 28-DAY CYCLE)
     Route: 048
  3. IBRANCE [Suspect]
     Active Substance: PALBOCICLIB
     Dosage: 100 MG, CYCLIC (ON DAYS 1-21 OF EACH 28-DAY CYCLE)
     Route: 048
     Dates: start: 2022
  4. FULVESTRANT [Concomitant]
     Active Substance: FULVESTRANT
     Dosage: Q28D

REACTIONS (5)
  - Retching [Unknown]
  - Vomiting [Unknown]
  - Body height decreased [Unknown]
  - COVID-19 [Unknown]
  - Product prescribing issue [Unknown]

NARRATIVE: CASE EVENT DATE: 20220101
